FAERS Safety Report 8852551 (Version 3)
Quarter: 2013Q1

REPORT INFORMATION
  Report Type: Spontaneous
  Country: BR (occurrence: BR)
  Receive Date: 20121022
  Receipt Date: 20130329
  Transmission Date: 20140127
  Serious: Yes (Hospitalization, Other)
  Sender: FDA-Public Use
  Company Number: PHHY2012BR093990

PATIENT
  Age: 75 None
  Sex: Male
  Weight: 90 kg

DRUGS (6)
  1. FORASEQ [Suspect]
     Indication: ASTHMA
     Dosage: 1 DF (12/400 UG), BID (ONE CAPSULE OF EACH TREATMENT TWICE A DAY IN MORNING AND AFTERNOON)
  2. FUIR [Concomitant]
     Indication: CHRONIC OBSTRUCTIVE PULMONARY DISEASE
     Dosage: 2 DF, TWO INHALATION PER DAY MORNING AND AFTERNOON
  3. CLONAZEPAM [Concomitant]
     Indication: EMOTIONAL DISORDER
     Dosage: 20 MG, ONE TABLET AT NIGHT
     Route: 048
  4. COMBIVENT [Concomitant]
     Indication: CHRONIC OBSTRUCTIVE PULMONARY DISEASE
     Dosage: 1 DF, ONE INHALATION IN THE MORNING
  5. AMPLICTIL [Concomitant]
     Indication: MENTAL DISORDER
     Dosage: 40 MG, THIRTY DROPS
  6. SPIRIVA [Concomitant]
     Indication: CHRONIC OBSTRUCTIVE PULMONARY DISEASE
     Dosage: 1 DF, UNK ONE INHALATION IN THE MORNING

REACTIONS (9)
  - General physical health deterioration [Unknown]
  - Mental disorder [Recovered/Resolved]
  - Delusion [Recovered/Resolved]
  - Brain hypoxia [Recovering/Resolving]
  - Pneumonia [Recovering/Resolving]
  - Weight decreased [Recovered/Resolved]
  - Skin cancer [Unknown]
  - Device malfunction [Unknown]
  - Asthenia [Unknown]
